FAERS Safety Report 7894914-8 (Version None)
Quarter: 2011Q4

REPORT INFORMATION
  Report Type: 
  Country: None (occurrence: None)
  Receive Date: 20111106
  Receipt Date: 20110819
  Transmission Date: 20120403
  Serious: No
  Sender: FDA-Public Use
  Company Number: US-AMGEN-USASP2011042494

PATIENT
  Age: 34 Year
  Sex: Female

DRUGS (4)
  1. ENBREL [Suspect]
     Indication: RHEUMATOID ARTHRITIS
     Dosage: 50 MG, QWK
     Dates: start: 19980101
  2. MEDROL [Concomitant]
  3. VICODIN [Concomitant]
  4. PRENATAL VITAMINS                  /01549301/ [Concomitant]
     Dosage: UNK UNK, QD
     Route: 048

REACTIONS (1)
  - ALOPECIA [None]
